FAERS Safety Report 8330464 (Version 2)
Quarter: 2012Q4

REPORT INFORMATION
  Report Type: 
  Country: US (occurrence: US)
  Receive Date: 20120111
  Receipt Date: 20121012
  Transmission Date: 20130627
  Serious: No
  Sender: FDA-Public Use
  Company Number: US-GLAXOSMITHKLINE-A0949952A

PATIENT
  Age: 59 Year
  Sex: Male
  Weight: 83.6 kg

DRUGS (1)
  1. JALYN [Suspect]
     Indication: PROSTATOMEGALY
     Route: 048
     Dates: start: 20110523, end: 20120413

REACTIONS (2)
  - Prostatomegaly [Recovered/Resolved]
  - Drug ineffective [Unknown]
